FAERS Safety Report 4407170-X (Version None)
Quarter: 2004Q3

REPORT INFORMATION
  Report Type: 
  Country: None (occurrence: None)
  Receive Date: 20040723
  Receipt Date: 20040723
  Transmission Date: 20050211
  Serious: Yes (Other)
  Sender: FDA-Public Use
  Company Number: None

PATIENT
  Age: 74 Year
  Sex: Male
  Weight: 86.2 kg

DRUGS (8)
  1. TERAZOSIN HCL [Suspect]
  2. LORATADINE [Concomitant]
  3. FOSINOPRIL SODIUM [Concomitant]
  4. FUROSEMIDE [Concomitant]
  5. METOPROLOL SUCCINATE [Concomitant]
  6. SENNOSIDES [Concomitant]
  7. CLOTRIMAZOLE [Concomitant]
  8. TAMSULOSIN HCL [Concomitant]

REACTIONS (1)
  - OEDEMA [None]
